FAERS Safety Report 19230834 (Version 1)
Quarter: 2021Q2

REPORT INFORMATION
  Report Type: Spontaneous
  Country: BA (occurrence: BA)
  Receive Date: 20210507
  Receipt Date: 20210507
  Transmission Date: 20210717
  Serious: Yes (Hospitalization)
  Sender: FDA-Public Use
  Company Number: BA-ABBVIE-21K-211-3890710-00

PATIENT
  Age: 47 Year
  Sex: Female

DRUGS (5)
  1. VENETOCLAX. [Suspect]
     Active Substance: VENETOCLAX
     Dosage: FIFTH WEEK
     Route: 048
     Dates: start: 202101
  2. VENETOCLAX. [Suspect]
     Active Substance: VENETOCLAX
     Indication: CHRONIC LYMPHOCYTIC LEUKAEMIA
     Dosage: FIRST WEEK
     Route: 048
     Dates: start: 20201206, end: 202012
  3. VENETOCLAX. [Suspect]
     Active Substance: VENETOCLAX
     Dosage: SECOND WEEK
     Route: 048
     Dates: start: 202012, end: 202012
  4. VENETOCLAX. [Suspect]
     Active Substance: VENETOCLAX
     Dosage: THIRD WEEK
     Route: 048
     Dates: start: 202012, end: 202012
  5. VENETOCLAX. [Suspect]
     Active Substance: VENETOCLAX
     Dosage: FOURTH WEEK
     Route: 048
     Dates: start: 202101, end: 202101

REACTIONS (2)
  - Pneumonia [Recovered/Resolved]
  - SARS-CoV-2 test positive [Recovered/Resolved]

NARRATIVE: CASE EVENT DATE: 20201212
